FAERS Safety Report 6233314-3 (Version None)
Quarter: 2009Q2

REPORT INFORMATION
  Report Type: 
  Country: None (occurrence: None)
  Receive Date: 20090617
  Receipt Date: 20090610
  Transmission Date: 20091009
  Serious: Yes (Hospitalization)
  Sender: FDA-Public Use
  Company Number: US-GILEAD-2009-0022524

PATIENT
  Sex: Male

DRUGS (19)
  1. LETAIRIS [Suspect]
     Indication: PULMONARY ARTERIAL HYPERTENSION
     Route: 048
     Dates: start: 20090401, end: 20090601
  2. LETAIRIS [Suspect]
     Route: 048
     Dates: start: 20090601
  3. LASIX [Concomitant]
  4. DILAUDID [Concomitant]
  5. AMIODARONE HCL [Concomitant]
  6. NITROGLYCERIN [Concomitant]
  7. CRESTOR [Concomitant]
  8. ALBUTEROL [Concomitant]
  9. LANTUS [Concomitant]
  10. NOVOLOG [Concomitant]
  11. AMITRIPTYLINE [Concomitant]
  12. CLEOCIN HCL [Concomitant]
  13. KLOR-CON [Concomitant]
  14. SEA-OMEGA 30 [Concomitant]
  15. VITAMIN D [Concomitant]
  16. NEXIUM [Concomitant]
  17. TUMS EXTRA STRENGTH [Concomitant]
  18. MAALOX [Concomitant]
  19. LIVOSTIN [Concomitant]

REACTIONS (3)
  - DYSPNOEA [None]
  - HEART RATE INCREASED [None]
  - OEDEMA [None]
